FAERS Safety Report 7365635-5 (Version None)
Quarter: 2011Q1

REPORT INFORMATION
  Report Type: 
  Country: None (occurrence: None)
  Receive Date: 20110322
  Receipt Date: 20110315
  Transmission Date: 20110831
  Serious: Yes (Other)
  Sender: FDA-Public Use
  Company Number: US-TEVA-271867USA

PATIENT
  Sex: Female

DRUGS (1)
  1. COPAXONE [Suspect]
     Indication: MULTIPLE SCLEROSIS
     Route: 058
     Dates: start: 20000101, end: 20060101

REACTIONS (4)
  - THROAT TIGHTNESS [None]
  - DYSPNOEA [None]
  - HYPERSENSITIVITY [None]
  - BACK PAIN [None]
